FAERS Safety Report 8986103 (Version 2)
Quarter: 2013Q2

REPORT INFORMATION
  Report Type: Spontaneous
  Country: US (occurrence: None)
  Receive Date: 20120508
  Receipt Date: 20121107
  Transmission Date: 20140414
  Serious: Yes (Other)
  Sender: FDA-Public Use
  Company Number: 2012HGS-003168

PATIENT
  Age: 27 Year
  Sex: Female
  Weight: 68.04 kg

DRUGS (7)
  1. BENLYSTA [Suspect]
     Indication: SYSTEMIC LUPUS ERYTHEMATOSUS
     Route: 041
     Dates: start: 20120125
  2. PROZAC [Suspect]
  3. XANAX (ALPRAZOLAM) [Concomitant]
  4. WELLBUTRIN (BUPROPION HYDROCHLORIDE) [Concomitant]
  5. ZOLOFT (SERTRALINE HYDROCHLORIDE) [Concomitant]
  6. ASPIRIN (ACETYLSALICYLIC ACID) [Concomitant]
  7. IMURAN (AZATHIOPRINE) [Concomitant]

REACTIONS (2)
  - Dystonia [None]
  - Dyskinesia [None]
